FAERS Safety Report 5146623-6 (Version None)
Quarter: 2006Q4

REPORT INFORMATION
  Report Type: 
  Country: None (occurrence: None)
  Receive Date: 20061109
  Receipt Date: 20060627
  Transmission Date: 20070319
  Serious: Yes (Other)
  Sender: FDA-Public Use
  Company Number: PHEH2006US08359

PATIENT
  Age: 4 Year
  Sex: Female
  Weight: 30.839 kg

DRUGS (2)
  1. TRILEPTAL [Suspect]
     Indication: COMPLEX PARTIAL SEIZURES
     Dosage: 720 MG, BID
     Route: 048
     Dates: start: 20051201
  2. TRILEPTAL [Suspect]
     Dates: start: 20060301

REACTIONS (7)
  - AGGRESSION [None]
  - CONVULSION [None]
  - EPILEPSY [None]
  - OBESITY [None]
  - PSYCHOMOTOR HYPERACTIVITY [None]
  - SWELLING FACE [None]
  - WEIGHT INCREASED [None]
